FAERS Safety Report 11681449 (Version 1)
Quarter: 2015Q4

REPORT INFORMATION
  Report Type: Report from Study
  Country: US (occurrence: US)
  Receive Date: 20151029
  Receipt Date: 20151029
  Transmission Date: 20160304
  Serious: Yes (Hospitalization)
  Sender: FDA-Public Use
  Company Number: US-TEVA-603485USA

PATIENT
  Sex: Female

DRUGS (4)
  1. DOCETAXEL. [Suspect]
     Active Substance: DOCETAXEL
     Indication: LIP AND/OR ORAL CAVITY CANCER
     Dosage: EVERY 3 WEEKS
     Route: 042
     Dates: start: 20150128
  2. NEULASTA [Concomitant]
     Active Substance: PEGFILGRASTIM
     Dates: start: 20150219
  3. CARBOPLATIN. [Suspect]
     Active Substance: CARBOPLATIN
     Indication: LIP AND/OR ORAL CAVITY CANCER
     Dosage: AUC 6, EVERY 3 WEEKS
     Route: 042
     Dates: start: 20150128
  4. ERLOTINIB HYDROCHLORIDE BLINDED (CODE NOT BROKEN) [Suspect]
     Active Substance: ERLOTINIB HYDROCHLORIDE
     Indication: LIP AND/OR ORAL CAVITY CANCER
     Dosage: 150 MILLIGRAM DAILY;
     Route: 048
     Dates: start: 20150128, end: 20150223

REACTIONS (3)
  - Neutrophil count decreased [Recovered/Resolved]
  - Platelet count decreased [Recovered/Resolved]
  - Colitis [Recovered/Resolved]

NARRATIVE: CASE EVENT DATE: 20150224
